FAERS Safety Report 6550428-9 (Version None)
Quarter: 2010Q1

REPORT INFORMATION
  Report Type: 
  Country: None (occurrence: None)
  Receive Date: 20100121
  Receipt Date: 20100106
  Transmission Date: 20100710
  Serious: Yes (Death, Hospitalization)
  Sender: FDA-Public Use
  Company Number: KV201000018

PATIENT
  Age: 70 Year
  Sex: Female
  Weight: 66 kg

DRUGS (15)
  1. MORPHINE SULFATE [Suspect]
     Indication: PAIN
     Dosage: 30 MG, BID, ORAL
     Route: 048
     Dates: start: 20080309
  2. NYSTATIN [Concomitant]
  3. ADVAIR DISKUS 100/50 [Concomitant]
  4. ALBUTEROL [Concomitant]
  5. PREDNISONE [Concomitant]
  6. XANAX [Concomitant]
  7. MIRALAX [Concomitant]
  8. ZESTRIL [Concomitant]
  9. NORVASC [Concomitant]
  10. SENNA (SENNA ALEXANDRINA) [Concomitant]
  11. COLACE (DOCUSATE SODIUM) [Concomitant]
  12. SPIRIVA [Concomitant]
  13. CALCIUM (CALCIUM) [Concomitant]
  14. BONIVA [Concomitant]
  15. LORTAB [Concomitant]

REACTIONS (15)
  - ACIDOSIS [None]
  - ACUTE RESPIRATORY FAILURE [None]
  - AGITATION [None]
  - ASTHENIA [None]
  - ATELECTASIS [None]
  - BACK PAIN [None]
  - CONFUSIONAL STATE [None]
  - HYPERCAPNIA [None]
  - HYPOKALAEMIA [None]
  - HYPOTENSION [None]
  - HYPOXIA [None]
  - LETHARGY [None]
  - PNEUMONIA [None]
  - PRODUCTIVE COUGH [None]
  - PYREXIA [None]
